FAERS Safety Report 12918072 (Version 3)
Quarter: 2016Q4

REPORT INFORMATION
  Report Type: Other
  Country: US (occurrence: US)
  Receive Date: 20161107
  Receipt Date: 20161220
  Transmission Date: 20170207
  Serious: Yes (Other)
  Sender: FDA-Public Use
  Company Number: US-ACORDA-ACO_129353_2016

PATIENT
  Age: 53 Year
  Sex: Female
  Weight: 53.52 kg

DRUGS (10)
  1. PERCOCET [Concomitant]
     Active Substance: ACETAMINOPHEN\OXYCODONE HYDROCHLORIDE
     Indication: PRODUCT USED FOR UNKNOWN INDICATION
     Dosage: 10/325 MG
     Route: 065
  2. AMPYRA [Suspect]
     Active Substance: DALFAMPRIDINE
     Indication: GAIT DISTURBANCE
     Dosage: 10 MG, QD
     Route: 048
     Dates: start: 20161011, end: 20161013
  3. ALL OTHER THERAPEUTIC PRODUCTS [Concomitant]
     Active Substance: UNSPECIFIED INGREDIENT
     Indication: PRODUCT USED FOR UNKNOWN INDICATION
     Dosage: UNK
     Route: 065
  4. AMPYRA [Suspect]
     Active Substance: DALFAMPRIDINE
     Dosage: 10 MG, QD
     Route: 048
     Dates: start: 20161011, end: 20161022
  5. DIFLUCAN [Concomitant]
     Active Substance: FLUCONAZOLE
     Indication: PRODUCT USED FOR UNKNOWN INDICATION
     Dosage: UNK
     Route: 065
  6. PROGESTERONE. [Concomitant]
     Active Substance: PROGESTERONE
     Indication: PRODUCT USED FOR UNKNOWN INDICATION
     Dosage: 200 MG, UNK
     Route: 065
  7. VITAMIN B COMPLEX [Concomitant]
     Active Substance: CYANOCOBALAMIN\DEXPANTHENOL\NIACINAMIDE\PYRIDOXINE HYDROCHLORIDE\RIBOFLAVIN 5^-PHOSPHATE SODIUM\THIAMINE HYDROCHLORIDE\VITAMIN B COMPLEX
     Indication: PRODUCT USED FOR UNKNOWN INDICATION
     Dosage: UNK
     Route: 065
  8. VITAMIN D [Concomitant]
     Active Substance: CHOLECALCIFEROL
     Indication: PRODUCT USED FOR UNKNOWN INDICATION
     Dosage: 5000 MG, UNK
     Route: 065
  9. VIVELLE-DOT [Concomitant]
     Active Substance: ESTRADIOL
     Indication: PRODUCT USED FOR UNKNOWN INDICATION
     Dosage: 0.05 MG, UNK
     Route: 065
  10. MULTIVITAMIN [Concomitant]
     Active Substance: VITAMINS
     Indication: PRODUCT USED FOR UNKNOWN INDICATION
     Dosage: UNK
     Route: 065

REACTIONS (35)
  - Abdominal discomfort [Recovering/Resolving]
  - Muscular weakness [Not Recovered/Not Resolved]
  - Eye irritation [Not Recovered/Not Resolved]
  - Dyspnoea [Recovered/Resolved]
  - Insomnia [Recovered/Resolved]
  - Multiple sclerosis relapse [Unknown]
  - Blindness [Not Recovered/Not Resolved]
  - Dizziness [Recovered/Resolved]
  - Constipation [Recovered/Resolved]
  - Hypersensitivity [Recovered/Resolved]
  - Balance disorder [Not Recovered/Not Resolved]
  - Restlessness [Not Recovered/Not Resolved]
  - Dry mouth [Not Recovered/Not Resolved]
  - Nausea [Recovered/Resolved]
  - Inappropriate schedule of drug administration [Unknown]
  - Seizure [Recovered/Resolved]
  - Musculoskeletal discomfort [Recovered/Resolved]
  - Muscle spasms [Not Recovered/Not Resolved]
  - Gait disturbance [Not Recovered/Not Resolved]
  - Therapeutic response unexpected [Unknown]
  - Pain [Recovering/Resolving]
  - Feeling hot [Recovered/Resolved]
  - Vision blurred [Not Recovered/Not Resolved]
  - Diplopia [Not Recovered/Not Resolved]
  - Halo vision [Not Recovered/Not Resolved]
  - Pollakiuria [Not Recovered/Not Resolved]
  - Pruritus [Recovered/Resolved]
  - Musculoskeletal discomfort [Not Recovered/Not Resolved]
  - Discomfort [Not Recovered/Not Resolved]
  - Fatigue [Not Recovered/Not Resolved]
  - Visual impairment [Not Recovered/Not Resolved]
  - Sleep disorder [Recovered/Resolved]
  - Salivary hypersecretion [Recovered/Resolved]
  - Skin tightness [Not Recovered/Not Resolved]
  - Blepharitis [Not Recovered/Not Resolved]

NARRATIVE: CASE EVENT DATE: 20161012
